FAERS Safety Report 10445740 (Version 1)
Quarter: 2014Q3

REPORT INFORMATION
  Report Type: Spontaneous
  Country: GB (occurrence: GB)
  Receive Date: 20140910
  Receipt Date: 20140910
  Transmission Date: 20150326
  Serious: Yes (Hospitalization, Other)
  Sender: FDA-Public Use
  Company Number: GB-TEVA-506193ISR

PATIENT
  Age: 92 Year
  Sex: Female

DRUGS (8)
  1. FUROSEMIDE. [Suspect]
     Active Substance: FUROSEMIDE
     Indication: LOCAL SWELLING
     Dosage: 60 MILLIGRAM DAILY; IN MORNING
     Route: 048
     Dates: end: 20120616
  2. LANSOPRAZOLE. [Concomitant]
     Active Substance: LANSOPRAZOLE
     Dosage: 30 MILLIGRAM DAILY; IN MORNING
  3. FERROUS SULFATE [Concomitant]
     Active Substance: FERROUS SULFATE\FERROUS SULFATE, DRIED
     Dosage: 2 DOSAGE FORMS DAILY;
  4. METFORMIN [Concomitant]
     Active Substance: METFORMIN HYDROCHLORIDE
  5. SIMVASTATIN. [Concomitant]
     Active Substance: SIMVASTATIN
     Dosage: 40 MILLIGRAM DAILY; AT NIGHT
  6. PERINDOPRIL [Suspect]
     Active Substance: PERINDOPRIL
     Dosage: 2 MILLIGRAM DAILY; RE-START 5 DAYS POST DISCHARGE
     Route: 048
     Dates: end: 20120616
  7. GLICLAZIDE [Concomitant]
     Active Substance: GLICLAZIDE
  8. CELEBREX [Suspect]
     Active Substance: CELECOXIB
     Indication: LOCAL SWELLING
     Dosage: UNKNOWN FREQUENCY
     Route: 048
     Dates: end: 20120616

REACTIONS (7)
  - Renal failure acute [Recovered/Resolved]
  - Crepitations [Recovered/Resolved]
  - Malaise [Recovered/Resolved]
  - Atrial fibrillation [Recovered/Resolved]
  - Lower respiratory tract infection [Recovered/Resolved]
  - Cough [Recovered/Resolved]
  - Dizziness [Recovered/Resolved]

NARRATIVE: CASE EVENT DATE: 20120616
